FAERS Safety Report 7942581-7 (Version None)
Quarter: 2011Q4

REPORT INFORMATION
  Report Type: 
  Country: None (occurrence: None)
  Receive Date: 20111128
  Receipt Date: 20111125
  Transmission Date: 20120403
  Serious: Yes (Hospitalization)
  Sender: FDA-Public Use
  Company Number: FR-GLAXOSMITHKLINE-B0765154A

PATIENT
  Sex: Female

DRUGS (13)
  1. FERROUS SULFATE TAB [Suspect]
     Indication: PRODUCT USED FOR UNKNOWN INDICATION
     Dosage: 80MG PER DAY
     Route: 048
     Dates: start: 20110819, end: 20111010
  2. HELICIDINE [Suspect]
     Indication: PRODUCT USED FOR UNKNOWN INDICATION
     Route: 048
     Dates: start: 20110401, end: 20111011
  3. CELESTONE [Concomitant]
     Route: 030
     Dates: start: 20110907, end: 20110907
  4. UVEDOSE [Concomitant]
     Dates: start: 20110821, end: 20110821
  5. FLAGYL [Suspect]
     Indication: PRODUCT USED FOR UNKNOWN INDICATION
     Dosage: 500MG PER DAY
     Route: 048
     Dates: start: 20110909, end: 20110914
  6. ACETAMINOPHEN [Suspect]
     Indication: PRODUCT USED FOR UNKNOWN INDICATION
     Route: 048
     Dates: start: 20110701, end: 20111011
  7. SYNTOCINON [Suspect]
     Indication: PRODUCT USED FOR UNKNOWN INDICATION
     Dates: start: 20111011, end: 20111011
  8. NIFEDIPINE [Concomitant]
     Dates: start: 20110709, end: 20110709
  9. AUGMENTIN '125' [Suspect]
     Indication: PYREXIA
     Route: 042
     Dates: start: 20111015, end: 20111017
  10. SPASFON [Suspect]
     Indication: PRODUCT USED FOR UNKNOWN INDICATION
     Dates: start: 20110701, end: 20111011
  11. ATOSIBAN [Concomitant]
     Dates: start: 20110709, end: 20110709
  12. CLAMOXYL IV [Suspect]
     Indication: PRODUCT USED FOR UNKNOWN INDICATION
     Route: 042
     Dates: start: 20111011, end: 20111011
  13. UNKNOWN [Concomitant]
     Indication: EPIDURAL ANAESTHESIA
     Dates: start: 20111011, end: 20111011

REACTIONS (7)
  - RASH GENERALISED [None]
  - FACE OEDEMA [None]
  - POLYMORPHIC ERUPTION OF PREGNANCY [None]
  - PYREXIA [None]
  - TOXIC SKIN ERUPTION [None]
  - RASH PUSTULAR [None]
  - LYMPHADENOPATHY [None]
